FAERS Safety Report 19481305 (Version 1)
Quarter: 2021Q3

REPORT INFORMATION
  Report Type: Spontaneous
  Country: JP (occurrence: JP)
  Receive Date: 20210701
  Receipt Date: 20210701
  Transmission Date: 20211014
  Serious: Yes (Hospitalization, Other)
  Sender: FDA-Public Use
  Company Number: JP-LUPIN PHARMACEUTICALS INC.-2021-10697

PATIENT
  Age: 35 Year
  Sex: Female

DRUGS (1)
  1. TESTOSTERONE. [Suspect]
     Active Substance: TESTOSTERONE
     Indication: GENDER DYSPHORIA
     Dosage: SERUM TESTOSTERONE LEVEL DURING THERAPY WAS MAINTAINED AT 43.8?712.8 NG/ DL (FORM: INJECTION)
     Route: 065

REACTIONS (1)
  - Chronic inflammatory demyelinating polyradiculoneuropathy [Recovering/Resolving]
